FAERS Safety Report 8453965-5 (Version None)
Quarter: 2012Q2

REPORT INFORMATION
  Report Type: 
  Country: None (occurrence: None)
  Receive Date: 20120620
  Receipt Date: 20120607
  Transmission Date: 20120825
  Serious: Yes (Other)
  Sender: FDA-Public Use
  Company Number: GB-MYLANLABS-2012S1011880

PATIENT
  Age: 16 Year
  Sex: Male

DRUGS (1)
  1. FLUOXETINE [Suspect]
     Indication: MAJOR DEPRESSION
     Dosage: 20 MG/DAY
     Route: 048
     Dates: start: 20070101

REACTIONS (5)
  - HOMICIDE [None]
  - FEELING ABNORMAL [None]
  - DYSKINESIA [None]
  - AGGRESSION [None]
  - TREATMENT NONCOMPLIANCE [None]
